FAERS Safety Report 9688326 (Version 3)
Quarter: 2013Q4

REPORT INFORMATION
  Report Type: Spontaneous
  Country: GB (occurrence: GB)
  Receive Date: 20131114
  Receipt Date: 20131118
  Transmission Date: 20140711
  Serious: No
  Sender: FDA-Public Use
  Company Number: PHFR2012GB003917

PATIENT
  Age: 53 Year
  Sex: Male

DRUGS (6)
  1. CLOZARIL [Suspect]
     Indication: SCHIZOPHRENIA
     Dosage: 225 MG, BID
     Route: 048
     Dates: start: 20090507
  2. HYOSCINE HYDROCHLORIDE [Concomitant]
     Dosage: 600 MG, BID
     Route: 048
  3. DOXYCYCLINE [Concomitant]
     Dosage: 100 MG, DAILY
     Route: 048
     Dates: start: 20131030
  4. EPILIM CHRONO [Concomitant]
     Dosage: 1200 MG, DAILY
     Route: 048
  5. TIOTROPIUM BROMIDE [Concomitant]
     Dosage: 2 DF, UNK
  6. SALBUTAMOL [Concomitant]
     Dosage: 10 MG, DAILY
     Dates: start: 20131025

REACTIONS (14)
  - Mean cell haemoglobin concentration decreased [Unknown]
  - Fibrin D dimer increased [Unknown]
  - Blood creatinine decreased [Unknown]
  - Haematocrit decreased [Unknown]
  - Red blood cell count decreased [Unknown]
  - Activated partial thromboplastin time prolonged [Unknown]
  - C-reactive protein increased [Unknown]
  - Alanine aminotransferase decreased [Unknown]
  - Platelet count increased [Unknown]
  - Differential white blood cell count abnormal [Not Recovered/Not Resolved]
  - White blood cell count increased [Not Recovered/Not Resolved]
  - Neutrophil count increased [Not Recovered/Not Resolved]
  - Monocyte count increased [Unknown]
  - Haemoglobin decreased [Unknown]
